FAERS Safety Report 12717496 (Version 2)
Quarter: 2016Q3

REPORT INFORMATION
  Report Type: Report from Study
  Country: US (occurrence: US)
  Receive Date: 20160906
  Receipt Date: 20160909
  Transmission Date: 20161109
  Serious: Yes (Other)
  Sender: FDA-Public Use
  Company Number: US-BAYER-2016-159490

PATIENT
  Age: 45 Year
  Sex: Female

DRUGS (2)
  1. STIVARGA [Suspect]
     Active Substance: REGORAFENIB
     Indication: COLORECTAL CANCER
     Dosage: 160 MG, QD (4 TABS)
     Route: 048
     Dates: start: 20160810, end: 20160818
  2. STIVARGA [Suspect]
     Active Substance: REGORAFENIB
     Indication: COLORECTAL CANCER
     Dosage: 80 MG, QD (2 TABS)
     Route: 048
     Dates: start: 20160819, end: 20160828

REACTIONS (20)
  - Fatigue [None]
  - Rash generalised [None]
  - Fall [None]
  - Motor dysfunction [None]
  - Dysphonia [None]
  - Asthenia [None]
  - Muscular weakness [None]
  - Nausea [None]
  - Pain in extremity [None]
  - Gingival bleeding [None]
  - Decreased appetite [None]
  - Gait disturbance [None]
  - Skin exfoliation [None]
  - Paraesthesia [None]
  - Feeling jittery [None]
  - Paraesthesia oral [None]
  - Dry mouth [None]
  - Tremor [None]
  - Product use issue [None]
  - Pain of skin [None]

NARRATIVE: CASE EVENT DATE: 201608
